FAERS Safety Report 8460158-4 (Version None)
Quarter: 2012Q2

REPORT INFORMATION
  Report Type: 
  Country: None (occurrence: None)
  Receive Date: 20120323
  Receipt Date: 20111123
  Transmission Date: 20120825
  Serious: Yes (Hospitalization, Other)
  Sender: FDA-Public Use
  Company Number: 163-21880-11101679

PATIENT
  Age: 74 Year
  Sex: Female

DRUGS (5)
  1. ASPIRIN [Concomitant]
  2. REVLIMID [Suspect]
     Indication: MULTIPLE MYELOMA
     Dosage: 5 MG, 1 IN 1 D, PO 5 MG, 1 IN 1 D, PO
     Route: 048
     Dates: start: 20110520
  3. REVLIMID [Suspect]
     Indication: MULTIPLE MYELOMA
     Dosage: 5 MG, 1 IN 1 D, PO 5 MG, 1 IN 1 D, PO
     Route: 048
     Dates: start: 20090101
  4. PAIN MEDICATION (ANALGESICS) (UNKNOWN) [Concomitant]
  5. COREG (CARVEDILOL) (UNKNOWN) [Concomitant]

REACTIONS (3)
  - CHEST PAIN [None]
  - HIP FRACTURE [None]
  - FALL [None]
